FAERS Safety Report 5819394-5 (Version None)
Quarter: 2008Q3

REPORT INFORMATION
  Report Type: 
  Country: None (occurrence: None)
  Receive Date: 20080723
  Receipt Date: 20080715
  Transmission Date: 20090109
  Serious: Yes (Hospitalization, Other)
  Sender: FDA-Public Use
  Company Number: US-AMGEN-US295432

PATIENT
  Sex: Female

DRUGS (16)
  1. PROCRIT [Suspect]
     Indication: DRUG USE FOR UNKNOWN INDICATION
     Route: 058
     Dates: start: 20071201
  2. TYLENOL [Concomitant]
  3. BENADRYL [Concomitant]
  4. PHENERGAN HCL [Concomitant]
  5. VALGANCICLOVIR HCL [Concomitant]
  6. NEXIUM [Concomitant]
  7. PEGYLATED INTERFERON ALFA-2B [Concomitant]
  8. RIBAVIRIN [Concomitant]
  9. CIPRO [Concomitant]
  10. CELEXA [Concomitant]
  11. REGLAN [Concomitant]
  12. ZOSYN [Concomitant]
  13. RANITIDINE HCL [Concomitant]
  14. VANCOMYCIN HCL [Concomitant]
  15. MAALOX [Concomitant]
  16. PROGRAF [Concomitant]

REACTIONS (4)
  - APLASIA PURE RED CELL [None]
  - BACTERIAL INFECTION [None]
  - HEPATIC FAILURE [None]
  - PLATELET COUNT ABNORMAL [None]
